FAERS Safety Report 23493293 (Version 4)
Quarter: 2024Q1

REPORT INFORMATION
  Report Type: Spontaneous
  Country: US (occurrence: US)
  Receive Date: 20240207
  Receipt Date: 20240329
  Transmission Date: 20240409
  Serious: No
  Sender: FDA-Public Use
  Company Number: US-PFIZER INC-202400017687

PATIENT
  Age: 14 Year
  Sex: Male
  Weight: 40.363 kg

DRUGS (3)
  1. GENOTROPIN [Suspect]
     Active Substance: SOMATROPIN
     Indication: Growth hormone deficiency
     Dosage: 1.8MG ALTERNATING WITH 2MG FOR 6 DAYS STRAIGHT AND RESTING ON DAY 7
     Dates: start: 20240108
  2. GENOTROPIN [Suspect]
     Active Substance: SOMATROPIN
     Dosage: 1.8MG ALTERNATING WITH 2MG FOR 6 DAYS STRAIGHT AND RESTING ON DAY 7
     Dates: start: 20240108
  3. GENOTROPIN [Suspect]
     Active Substance: SOMATROPIN
     Dosage: 1.8MG/2MG
     Dates: start: 20240108

REACTIONS (4)
  - Drug dose omission by device [Unknown]
  - Device breakage [Unknown]
  - Device leakage [Unknown]
  - Device malfunction [Recovered/Resolved]

NARRATIVE: CASE EVENT DATE: 20240115
